FAERS Safety Report 21023954 (Version 1)
Quarter: 2022Q2

REPORT INFORMATION
  Report Type: Spontaneous
  Country: US (occurrence: None)
  Receive Date: 20220629
  Receipt Date: 20220629
  Transmission Date: 20220721
  Serious: No
  Sender: FDA-Public Use
  Company Number: None

PATIENT
  Age: 67 Year
  Sex: Female
  Weight: 60.51 kg

DRUGS (7)
  1. CAPECITABINE [Suspect]
     Active Substance: CAPECITABINE
     Indication: Carcinoid tumour in the large intestine
     Dosage: 500MG TWICE DAILY ORAL?
     Route: 048
     Dates: start: 202110
  2. TEMOZOLOMIDE [Suspect]
     Active Substance: TEMOZOLOMIDE
     Indication: Carcinoid tumour in the large intestine
     Dosage: 250MG ONCE DAILY ORAL
     Route: 048
     Dates: start: 202110
  3. AMITRIPTYLINE [Concomitant]
     Active Substance: AMITRIPTYLINE
  4. ASPIRIN [Concomitant]
     Active Substance: ASPIRIN
  5. CORLANOR [Concomitant]
     Active Substance: IVABRADINE HYDROCHLORIDE
  6. ROSUVASTATIN [Concomitant]
     Active Substance: ROSUVASTATIN
  7. TEMODAR [Concomitant]
     Active Substance: TEMOZOLOMIDE

REACTIONS (1)
  - Platelet count decreased [None]
